FAERS Safety Report 13097589 (Version 1)
Quarter: 2017Q1

REPORT INFORMATION
  Report Type: Spontaneous
  Country: None (occurrence: US)
  Receive Date: 20170107
  Receipt Date: 20170107
  Transmission Date: 20170428
  Serious: Yes (Hospitalization)
  Sender: FDA-Public Use
  Company Number: None

PATIENT
  Age: 70 Year
  Sex: Male
  Weight: 95.1 kg

DRUGS (3)
  1. BENDAMUSTINE HYDROCHLORIDE. [Suspect]
     Active Substance: BENDAMUSTINE HYDROCHLORIDE
     Dates: end: 20170105
  2. VELCADE [Suspect]
     Active Substance: BORTEZOMIB
     Dates: end: 20170105
  3. RITUXIMAB [Suspect]
     Active Substance: RITUXIMAB
     Dates: end: 20170105

REACTIONS (1)
  - Chest pain [None]

NARRATIVE: CASE EVENT DATE: 20170105
